FAERS Safety Report 17079404 (Version 3)
Quarter: 2020Q1

REPORT INFORMATION
  Report Type: Report from Study
  Country: None (occurrence: US)
  Receive Date: 20191127
  Receipt Date: 20200102
  Transmission Date: 20200409
  Serious: Yes (Hospitalization)
  Sender: FDA-Public Use
  Company Number: US-ABBVIE-19K-163-3013576-00

PATIENT
  Age: 67 Year
  Sex: Female

DRUGS (2)
  1. VENCLEXTA [Suspect]
     Active Substance: VENETOCLAX
     Route: 048
     Dates: start: 201911
  2. VENCLEXTA [Suspect]
     Active Substance: VENETOCLAX
     Indication: ACUTE MYELOID LEUKAEMIA
     Route: 048
     Dates: start: 20191106, end: 201911

REACTIONS (9)
  - Tremor [Unknown]
  - Viral infection [Unknown]
  - Balance disorder [Unknown]
  - Neutropenia [Unknown]
  - Asthenia [Unknown]
  - Decreased appetite [Unknown]
  - Depression [Unknown]
  - Vomiting [Unknown]
  - Nausea [Unknown]

NARRATIVE: CASE EVENT DATE: 201911
